FAERS Safety Report 4448963-2 (Version None)
Quarter: 2004Q3

REPORT INFORMATION
  Report Type: 
  Country: None (occurrence: None)
  Receive Date: 20040909
  Receipt Date: 20040824
  Transmission Date: 20050211
  Serious: Yes (Death, Hospitalization, Disabling, Other)
  Sender: FDA-Public Use
  Company Number: USA040876347

PATIENT
  Sex: Male

DRUGS (1)
  1. INSULIN [Suspect]

REACTIONS (1)
  - LEG AMPUTATION [None]
